FAERS Safety Report 18531472 (Version 1)
Quarter: 2020Q4

REPORT INFORMATION
  Report Type: Report from Study
  Country: None (occurrence: NL)
  Receive Date: 20201122
  Receipt Date: 20201122
  Transmission Date: 20210114
  Serious: Yes (Hospitalization)
  Sender: FDA-Public Use
  Company Number: NL-ABBVIE-20K-114-3657445-00

PATIENT
  Sex: Male

DRUGS (4)
  1. DUODOPA [Suspect]
     Active Substance: CARBIDOPA\LEVODOPA
     Dosage: MD: 7.2 ML, CD: 3.2 ML/HR, ED: 2.2 ML
     Route: 050
     Dates: start: 2020
  2. DUODOPA [Suspect]
     Active Substance: CARBIDOPA\LEVODOPA
     Dosage: MD: 7.2 ML, CD: 3.4 ML/HR, ED: 2.4 ML
     Route: 050
     Dates: start: 2020, end: 2020
  3. DUODOPA [Suspect]
     Active Substance: CARBIDOPA\LEVODOPA
     Indication: PARKINSON^S DISEASE
     Dosage: MD: 7.2 ML, CD: 3.4 ML/HR, ED: 2.4 ML
     Route: 050
     Dates: start: 20200325, end: 2020
  4. DUODOPA [Suspect]
     Active Substance: CARBIDOPA\LEVODOPA
     Dosage: MD: 7.2 ML, CD: 3.4 ML/HR, ED: 2.6 ML
     Route: 050
     Dates: start: 2020, end: 2020

REACTIONS (7)
  - Nephrolithiasis [Not Recovered/Not Resolved]
  - Inappropriate schedule of product administration [Unknown]
  - Dyskinesia [Unknown]
  - Wrong technique in device usage process [Not Recovered/Not Resolved]
  - Urinary retention [Not Recovered/Not Resolved]
  - Overdose [Recovered/Resolved]
  - Parkinson^s disease [Not Recovered/Not Resolved]

NARRATIVE: CASE EVENT DATE: 2020
